FAERS Safety Report 7830686-0 (Version None)
Quarter: 2011Q4

REPORT INFORMATION
  Report Type: 
  Country: None (occurrence: None)
  Receive Date: 20111021
  Receipt Date: 20111014
  Transmission Date: 20120403
  Serious: Yes (Hospitalization)
  Sender: FDA-Public Use
  Company Number: IT-BRISTOL-MYERS SQUIBB COMPANY-16170128

PATIENT
  Age: 49 Year
  Sex: Male

DRUGS (5)
  1. METFORMIN HCL [Suspect]
     Indication: DIABETES MELLITUS
     Dates: start: 20090101, end: 20110511
  2. REYATAZ [Suspect]
     Indication: HIV INFECTION
     Route: 048
     Dates: start: 20090101, end: 20110511
  3. COMBIVIR [Suspect]
     Indication: HIV INFECTION
     Dates: start: 20090101, end: 20110511
  4. FENOFIBRATE [Suspect]
     Indication: HYPERLIPIDAEMIA
     Dosage: CAPS
     Dates: start: 20090101, end: 20110511
  5. HUMALOG [Concomitant]
     Indication: TYPE 2 DIABETES MELLITUS
     Dosage: 1DF=14UNITS

REACTIONS (1)
  - PANCREATITIS ACUTE [None]
